FAERS Safety Report 24893200 (Version 1)
Quarter: 2025Q1

REPORT INFORMATION
  Report Type: Spontaneous
  Country: NO (occurrence: None)
  Receive Date: 20250128
  Receipt Date: 20250128
  Transmission Date: 20250409
  Serious: Yes (Hospitalization, Other)
  Sender: UNICHEM
  Company Number: NO-Unichem Pharmaceuticals (USA) Inc-UCM202501-000104

PATIENT
  Sex: Female

DRUGS (1)
  1. QUETIAPINE [Suspect]
     Active Substance: QUETIAPINE
     Indication: Product used for unknown indication

REACTIONS (22)
  - Urinary retention [Unknown]
  - Status epilepticus [Unknown]
  - Sepsis [Unknown]
  - Acute respiratory distress syndrome [Recovering/Resolving]
  - Aspiration [Unknown]
  - Bundle branch block left [Unknown]
  - Lung consolidation [Unknown]
  - Metabolic acidosis [Unknown]
  - Bradycardia [Recovering/Resolving]
  - Skin warm [Unknown]
  - Dry skin [Unknown]
  - Hypothermia [Unknown]
  - Seizure [Unknown]
  - Electrocardiogram QRS complex prolonged [Unknown]
  - Electrocardiogram QT prolonged [Unknown]
  - Rhabdomyolysis [Unknown]
  - Sinus tachycardia [Unknown]
  - Atrioventricular block first degree [Unknown]
  - Coma scale abnormal [Unknown]
  - Hypotension [Recovering/Resolving]
  - Toxicity to various agents [Unknown]
  - Overdose [Unknown]
